FAERS Safety Report 12755909 (Version 1)
Quarter: 2016Q3

REPORT INFORMATION
  Report Type: Report from Study
  Country: US (occurrence: US)
  Receive Date: 20160916
  Receipt Date: 20160916
  Transmission Date: 20161109
  Serious: No
  Sender: FDA-Public Use
  Company Number: US-009507513-1609USA004096

PATIENT

DRUGS (6)
  1. YERVOY [Suspect]
     Active Substance: IPILIMUMAB
     Indication: LUNG NEOPLASM MALIGNANT
  2. OPDIVO [Suspect]
     Active Substance: NIVOLUMAB
     Indication: HODGKIN^S DISEASE
  3. KEYTRUDA [Suspect]
     Active Substance: PEMBROLIZUMAB
     Indication: HODGKIN^S DISEASE
  4. KEYTRUDA [Suspect]
     Active Substance: PEMBROLIZUMAB
     Indication: LUNG NEOPLASM MALIGNANT
  5. YERVOY [Suspect]
     Active Substance: IPILIMUMAB
     Indication: HODGKIN^S DISEASE
  6. OPDIVO [Suspect]
     Active Substance: NIVOLUMAB
     Indication: LUNG NEOPLASM MALIGNANT

REACTIONS (2)
  - Pneumonitis [Unknown]
  - Product use issue [Unknown]
